FAERS Safety Report 8919243 (Version 1)
Quarter: 2012Q4

REPORT INFORMATION
  Report Type: 
  Country: GB (occurrence: GB)
  Receive Date: 20121121
  Receipt Date: 20121121
  Transmission Date: 20130627
  Serious: Yes (Other)
  Sender: FDA-Public Use
  Company Number: GB-PFIZER INC-2012287505

PATIENT
  Age: 27 Year
  Sex: Male
  Weight: 69.85 kg

DRUGS (1)
  1. CHAMPIX [Suspect]
     Indication: SMOKING CESSATION THERAPY
     Dosage: 0.5 mg, UNK
     Route: 048
     Dates: start: 20121101, end: 20121106

REACTIONS (8)
  - Suicidal ideation [Recovered/Resolved]
  - Depression [Recovered/Resolved]
  - Depressed mood [Recovered/Resolved]
  - Negative thoughts [Unknown]
  - Medication error [Unknown]
  - Anxiety [Unknown]
  - Malaise [Recovered/Resolved]
  - Abnormal dreams [Recovered/Resolved]
